FAERS Safety Report 16470578 (Version 1)
Quarter: 2019Q2

REPORT INFORMATION
  Report Type: Other
  Country: QA (occurrence: QA)
  Receive Date: 20190624
  Receipt Date: 20190624
  Transmission Date: 20190711
  Serious: Yes (Other)
  Sender: FDA-Public Use
  Company Number: QA-EMD SERONO-9099606

PATIENT
  Age: 6 Year
  Sex: Female

DRUGS (2)
  1. SOMATROPIN. [Suspect]
     Active Substance: SOMATROPIN
     Indication: GROWTH HORMONE DEFICIENCY
     Dosage: AT THE AGE OF TWO YEARS
     Route: 058
  2. SOMATROPIN. [Suspect]
     Active Substance: SOMATROPIN
     Dosage: AT THE AGE OF FOUR YEARS
     Route: 058

REACTIONS (1)
  - Idiopathic intracranial hypertension [Recovering/Resolving]
